FAERS Safety Report 16945492 (Version 1)
Quarter: 2019Q4

REPORT INFORMATION
  Report Type: Spontaneous
  Country: US (occurrence: US)
  Receive Date: 20191021
  Receipt Date: 20191021
  Transmission Date: 20200122
  Serious: Yes (Other)
  Sender: FDA-Public Use
  Company Number: None

PATIENT
  Sex: Female

DRUGS (1)
  1. MINOCYCLINE [Suspect]
     Active Substance: MINOCYCLINE HYDROCHLORIDE
     Indication: RASH
     Dosage: ?          QUANTITY:1 CAPSULE(S);?
     Route: 048
     Dates: start: 20190920, end: 20191018

REACTIONS (17)
  - Abdominal pain upper [None]
  - Musculoskeletal stiffness [None]
  - Headache [None]
  - Arthralgia [None]
  - Anxiety [None]
  - Feeling abnormal [None]
  - Vulvovaginal swelling [None]
  - Confusional state [None]
  - Eye pain [None]
  - Pain in jaw [None]
  - Burning sensation [None]
  - Suicidal ideation [None]
  - Fatigue [None]
  - Amnesia [None]
  - Feeding disorder [None]
  - Tremor [None]
  - Depression [None]

NARRATIVE: CASE EVENT DATE: 20190920
